FAERS Safety Report 23062815 (Version 7)
Quarter: 2024Q3

REPORT INFORMATION
  Report Type: Report from Study
  Country: ES (occurrence: ES)
  Receive Date: 20231013
  Receipt Date: 20240816
  Transmission Date: 20241017
  Serious: Yes (Hospitalization, Other)
  Sender: TAKEDA
  Company Number: ES-TAKEDA-2023TUS098436

PATIENT
  Age: 4 Year
  Sex: Male

DRUGS (23)
  1. TEDUGLUTIDE [Suspect]
     Active Substance: TEDUGLUTIDE
     Indication: Short-bowel syndrome
     Dosage: 0.35 MILLIGRAM, QD
     Route: 042
     Dates: start: 20201119, end: 20210729
  2. TEDUGLUTIDE [Suspect]
     Active Substance: TEDUGLUTIDE
     Indication: Short-bowel syndrome
     Dosage: 0.35 MILLIGRAM, QD
     Route: 042
     Dates: start: 20201119, end: 20210729
  3. TEDUGLUTIDE [Suspect]
     Active Substance: TEDUGLUTIDE
     Indication: Short-bowel syndrome
     Dosage: 0.35 MILLIGRAM, QD
     Route: 042
     Dates: start: 20201119, end: 20210729
  4. TEDUGLUTIDE [Suspect]
     Active Substance: TEDUGLUTIDE
     Indication: Short-bowel syndrome
     Dosage: 0.35 MILLIGRAM, QD
     Route: 042
     Dates: start: 20201119, end: 20210729
  5. TEDUGLUTIDE [Suspect]
     Active Substance: TEDUGLUTIDE
     Dosage: 0.35 MILLIGRAM, QD
     Route: 042
     Dates: start: 20220810, end: 20230731
  6. TEDUGLUTIDE [Suspect]
     Active Substance: TEDUGLUTIDE
     Dosage: 0.35 MILLIGRAM, QD
     Route: 042
     Dates: start: 20220810, end: 20230731
  7. TEDUGLUTIDE [Suspect]
     Active Substance: TEDUGLUTIDE
     Dosage: 0.35 MILLIGRAM, QD
     Route: 042
     Dates: start: 20220810, end: 20230731
  8. TEDUGLUTIDE [Suspect]
     Active Substance: TEDUGLUTIDE
     Dosage: 0.35 MILLIGRAM, QD
     Route: 042
     Dates: start: 20220810, end: 20230731
  9. TEDUGLUTIDE [Suspect]
     Active Substance: TEDUGLUTIDE
     Dosage: 0.8 MILLIGRAM, QD
     Route: 042
     Dates: start: 20230731, end: 20231012
  10. TEDUGLUTIDE [Suspect]
     Active Substance: TEDUGLUTIDE
     Dosage: 0.8 MILLIGRAM, QD
     Route: 042
     Dates: start: 20230731, end: 20231012
  11. TEDUGLUTIDE [Suspect]
     Active Substance: TEDUGLUTIDE
     Dosage: 0.8 MILLIGRAM, QD
     Route: 042
     Dates: start: 20230731, end: 20231012
  12. TEDUGLUTIDE [Suspect]
     Active Substance: TEDUGLUTIDE
     Dosage: 0.8 MILLIGRAM, QD
     Route: 042
     Dates: start: 20230731, end: 20231012
  13. METRONIDAZOLE [Concomitant]
     Active Substance: METRONIDAZOLE
     Indication: Metabolic acidosis
     Dosage: 112.5 MILLIGRAM, BID
     Route: 048
     Dates: start: 20230905, end: 20230909
  14. TEICOPLANIN [Concomitant]
     Active Substance: TEICOPLANIN
     Indication: Viral infection
     Dosage: 140 MILLIGRAM, QD
     Route: 042
     Dates: start: 20230621, end: 20230625
  15. CEFOTAXIME [Concomitant]
     Active Substance: CEFOTAXIME SODIUM
     Indication: Viral infection
     Dosage: 900 MILLIGRAM, Q8HR
     Route: 042
     Dates: start: 20230621, end: 20230625
  16. VITAMIN D3 [Concomitant]
     Active Substance: CHOLECALCIFEROL
     Indication: Lactic acidosis
     Dosage: 3000 INTERNATIONAL UNIT, QD
     Route: 048
     Dates: start: 20230221
  17. LEVOTHYROXINE [Concomitant]
     Active Substance: LEVOTHYROXINE\LEVOTHYROXINE SODIUM
     Indication: Hypothyroidism
     Dosage: 100 MILLIGRAM, QD
     Route: 048
     Dates: start: 20231107
  18. URSODIOL [Concomitant]
     Active Substance: URSODIOL
     Indication: Cholestasis
     Dosage: 100 MILLIGRAM, TID
     Route: 048
     Dates: start: 20231107
  19. FLAGYL [Concomitant]
     Active Substance: METRONIDAZOLE\METRONIDAZOLE HYDROCHLORIDE
     Indication: Metabolic acidosis
     Dosage: 140 MILLIGRAM, TID
     Route: 048
     Dates: start: 20240128, end: 20240207
  20. FUROSEMIDE [Concomitant]
     Active Substance: FUROSEMIDE
     Indication: Hyponatraemia
     Dosage: 4.35 MILLIGRAM
     Route: 042
     Dates: start: 20240124, end: 20240125
  21. FUROSEMIDE [Concomitant]
     Active Substance: FUROSEMIDE
     Dosage: 7.25 MILLIGRAM, TID
     Route: 042
     Dates: start: 20240125, end: 20240127
  22. DALBAVANCIN [Concomitant]
     Active Substance: DALBAVANCIN
     Indication: Central venous catheterisation
     Dosage: 300 MILLIGRAM
     Route: 042
     Dates: start: 20240306, end: 20240315
  23. CLOXACILLIN [Concomitant]
     Active Substance: CLOXACILLIN
     Indication: Central venous catheterisation
     Dosage: UNK
     Route: 042
     Dates: start: 20240214, end: 20240306

REACTIONS (11)
  - Lactic acidosis [Recovered/Resolved]
  - Device breakage [Recovered/Resolved]
  - Device related sepsis [Recovered/Resolved]
  - Thrombosis [Not Recovered/Not Resolved]
  - Inappropriate antidiuretic hormone secretion [Not Recovered/Not Resolved]
  - Hepatosplenomegaly [Recovered/Resolved]
  - Hypertransaminasaemia [Not Recovered/Not Resolved]
  - Lung consolidation [Not Recovered/Not Resolved]
  - Herpes simplex [Recovered/Resolved]
  - Stomatitis [Recovered/Resolved]
  - Vomiting [Recovered/Resolved]

NARRATIVE: CASE EVENT DATE: 20230903
